FAERS Safety Report 17618797 (Version 1)
Quarter: 2020Q2

REPORT INFORMATION
  Report Type: Report from Study
  Country: KW (occurrence: KW)
  Receive Date: 20200402
  Receipt Date: 20200402
  Transmission Date: 20200713
  Serious: Yes (Hospitalization, Other)
  Sender: FDA-Public Use
  Company Number: KW-JNJFOC-20200150020

PATIENT
  Age: 15 Year
  Sex: Female
  Weight: 39 kg

DRUGS (2)
  1. STELARA [Suspect]
     Active Substance: USTEKINUMAB
     Route: 042
     Dates: start: 20190716
  2. STELARA [Suspect]
     Active Substance: USTEKINUMAB
     Indication: CROHN^S DISEASE
     Route: 058

REACTIONS (4)
  - Insomnia [Unknown]
  - Abdominal pain [Not Recovered/Not Resolved]
  - Hallucination, auditory [Unknown]
  - Rectal haemorrhage [Not Recovered/Not Resolved]

NARRATIVE: CASE EVENT DATE: 20200129
